FAERS Safety Report 7281703-0 (Version None)
Quarter: 2011Q1

REPORT INFORMATION
  Report Type: 
  Country: None (occurrence: None)
  Receive Date: 20110208
  Receipt Date: 20110127
  Transmission Date: 20110831
  Serious: Yes (Hospitalization)
  Sender: FDA-Public Use
  Company Number: US-ASTRAZENECA-2011SE04745

PATIENT
  Sex: Male
  Weight: 75.7 kg

DRUGS (2)
  1. KLONOPIN [Concomitant]
  2. SEROQUEL [Suspect]
     Route: 048

REACTIONS (1)
  - COLON CANCER [None]
